FAERS Safety Report 15709082 (Version 1)
Quarter: 2018Q4

REPORT INFORMATION
  Report Type: Report from Study
  Country: CH (occurrence: CH)
  Receive Date: 20181211
  Receipt Date: 20181211
  Transmission Date: 20190205
  Serious: Yes (Other)
  Sender: FDA-Public Use
  Company Number: CH-TEVA-2018-CH-985782

PATIENT
  Age: 54 Year
  Sex: Female

DRUGS (2)
  1. AZATHIOPRINE. [Suspect]
     Active Substance: AZATHIOPRINE
     Indication: IMMUNOSUPPRESSANT DRUG THERAPY
     Dosage: 75 MILLIGRAM DAILY;
     Route: 065
  2. TACROLIMUS. [Suspect]
     Active Substance: TACROLIMUS
     Indication: IMMUNOSUPPRESSANT DRUG THERAPY
     Dosage: 4 MILLIGRAM DAILY;
     Route: 065

REACTIONS (2)
  - Hepatitis viral [Recovered/Resolved]
  - Hepatitis E [Recovered/Resolved]
